FAERS Safety Report 4775301-8 (Version None)
Quarter: 2005Q3

REPORT INFORMATION
  Report Type: 
  Country: None (occurrence: None)
  Receive Date: 20050920
  Receipt Date: 20050920
  Transmission Date: 20060218
  Serious: Yes (Hospitalization)
  Sender: FDA-Public Use
  Company Number: None

PATIENT
  Sex: Male
  Weight: 70.45 kg

DRUGS (4)
  1. EPIRUBICIN [Suspect]
     Indication: GASTRIC CANCER
     Dosage: SEE IMAGE
     Route: 042
     Dates: start: 20050811, end: 20050811
  2. CISPLATIN [Suspect]
     Dosage: SEE IMAGE
     Route: 042
     Dates: start: 20050811, end: 20050811
  3. FLUOROURACIL [Suspect]
     Dosage: SEE IMAGE
     Dates: start: 20050811, end: 20050901
  4. COMPAZINE [Concomitant]

REACTIONS (4)
  - DRUG TOXICITY [None]
  - FATIGUE [None]
  - MUSCULAR WEAKNESS [None]
  - TREMOR [None]
